FAERS Safety Report 15952865 (Version 1)
Quarter: 2019Q1

REPORT INFORMATION
  Report Type: Report from Study
  Country: None (occurrence: US)
  Receive Date: 20190212
  Receipt Date: 20190212
  Transmission Date: 20190417
  Serious: Yes (Other)
  Sender: FDA-Public Use
  Company Number: US-ABBVIE-17K-163-2029876-00

PATIENT
  Sex: Female

DRUGS (1)
  1. HUMIRA [Suspect]
     Active Substance: ADALIMUMAB
     Indication: RHEUMATOID ARTHRITIS
     Route: 058

REACTIONS (10)
  - Vitreous detachment [Not Recovered/Not Resolved]
  - Eye haemorrhage [Unknown]
  - Fall [Recovering/Resolving]
  - Swelling [Unknown]
  - Rheumatoid arthritis [Recovered/Resolved]
  - Upper limb fracture [Recovering/Resolving]
  - Musculoskeletal stiffness [Unknown]
  - Rash [Unknown]
  - Pyrexia [Unknown]
  - Blindness [Unknown]
